FAERS Safety Report 19250187 (Version 3)
Quarter: 2022Q3

REPORT INFORMATION
  Report Type: Spontaneous
  Country: JP (occurrence: JP)
  Receive Date: 20210512
  Receipt Date: 20220830
  Transmission Date: 20221026
  Serious: Yes (Death, Life-Threatening, Hospitalization, Other)
  Sender: FDA-Public Use
  Company Number: JP-AMGEN-JPNSP2021039262

PATIENT
  Age: 67 Year
  Sex: Male
  Weight: 74 kg

DRUGS (11)
  1. BLINCYTO [Suspect]
     Active Substance: BLINATUMOMAB
     Indication: Acute lymphocytic leukaemia recurrent
     Dosage: 18 MICROGRAM, QD
     Route: 042
     Dates: start: 20210303, end: 20210304
  2. PREDNISOLONE [Concomitant]
     Active Substance: PREDNISOLONE
     Dosage: UNK, QD
  3. DEXAMETHASONE [Concomitant]
     Active Substance: DEXAMETHASONE
     Dosage: UNK
  4. OXYGEN [Concomitant]
     Active Substance: OXYGEN
     Indication: Hypoxia
     Dosage: 3 LITER
     Dates: start: 20210227
  5. OXYGEN [Concomitant]
     Active Substance: OXYGEN
     Dosage: 9 LITER
     Dates: start: 20210227
  6. DEXAMETHASONE SODIUM PHOSPHATE [Concomitant]
     Active Substance: DEXAMETHASONE SODIUM PHOSPHATE
     Dosage: 19.8 MILLIGRAM, QD
     Dates: start: 20210303, end: 20210303
  7. FILGRASTIM [Concomitant]
     Active Substance: FILGRASTIM
     Indication: Neutrophil count decreased
     Dosage: 75 MICROGRAM, QD
     Dates: start: 20210302
  8. LASIX [Concomitant]
     Active Substance: FUROSEMIDE
  9. CALONAL [Concomitant]
     Active Substance: ACETAMINOPHEN
  10. RBC [FERRIC HYDROXIDE POLYMALTOSE COMPLEX] [Concomitant]
  11. POLARAMINE [Concomitant]
     Active Substance: DEXCHLORPHENIRAMINE MALEATE

REACTIONS (3)
  - Acute kidney injury [Recovered/Resolved]
  - Cytokine release syndrome [Recovered/Resolved]
  - Acute lymphocytic leukaemia recurrent [Fatal]

NARRATIVE: CASE EVENT DATE: 20210301
